FAERS Safety Report 8180538-4 (Version None)
Quarter: 2012Q1

REPORT INFORMATION
  Report Type: 
  Country: None (occurrence: None)
  Receive Date: 20120302
  Receipt Date: 20120227
  Transmission Date: 20120608
  Serious: Yes (Hospitalization)
  Sender: FDA-Public Use
  Company Number: US-GILEAD-2012-0050743

PATIENT
  Sex: Male

DRUGS (4)
  1. OXYGEN [Concomitant]
  2. LETAIRIS [Suspect]
     Indication: PULMONARY HYPERTENSION
     Dosage: 5 MG, UNK
     Route: 048
     Dates: start: 20120124
  3. LETAIRIS [Suspect]
     Indication: IDIOPATHIC PULMONARY FIBROSIS
  4. LETAIRIS [Suspect]
     Indication: SCLERODERMA

REACTIONS (3)
  - DYSPNOEA [None]
  - PALPITATIONS [None]
  - LUNG DISORDER [None]
